FAERS Safety Report 23560680 (Version 4)
Quarter: 2024Q2

REPORT INFORMATION
  Report Type: Spontaneous
  Country: US (occurrence: US)
  Receive Date: 20240223
  Receipt Date: 20240607
  Transmission Date: 20240715
  Serious: Yes (Hospitalization, Disabling)
  Sender: FDA-Public Use
  Company Number: US-Calliditas-2024CAL00281

PATIENT
  Age: 61 Year
  Sex: Male

DRUGS (10)
  1. TARPEYO [Suspect]
     Active Substance: BUDESONIDE
     Indication: IgA nephropathy
     Dosage: 16 MG (4 MG CAPSULES) ONCE DAILY
     Route: 048
     Dates: start: 20231007
  2. TRAZODONE [Concomitant]
     Active Substance: TRAZODONE HYDROCHLORIDE
  3. ZIPRASIDONE [Concomitant]
     Active Substance: ZIPRASIDONE
  4. ADVAIR HFA [Concomitant]
     Active Substance: FLUTICASONE PROPIONATE\SALMETEROL XINAFOATE
  5. ATORVASTATIN [Concomitant]
     Active Substance: ATORVASTATIN
  6. ALBUTEROL [Concomitant]
     Active Substance: ALBUTEROL
  7. METHADONE [Concomitant]
     Active Substance: METHADONE HYDROCHLORIDE
  8. FILSPARI [Concomitant]
     Active Substance: SPARSENTAN
  9. ALPRAZOLAM [Concomitant]
     Active Substance: ALPRAZOLAM
  10. CHOLECALCIFEROL [Concomitant]
     Active Substance: CHOLECALCIFEROL

REACTIONS (6)
  - Condition aggravated [Unknown]
  - Contrast media reaction [Unknown]
  - COVID-19 [Unknown]
  - IgA nephropathy [Unknown]
  - Walking disability [Unknown]
  - Contusion [Unknown]
